FAERS Safety Report 18378549 (Version 2)
Quarter: 2020Q4

REPORT INFORMATION
  Report Type: Spontaneous
  Country: CZ (occurrence: CZ)
  Receive Date: 20201013
  Receipt Date: 20201023
  Transmission Date: 20210114
  Serious: Yes (Other)
  Sender: FDA-Public Use
  Company Number: CZ-IGSA-BIG0011566

PATIENT
  Age: 69 Year
  Sex: Male

DRUGS (11)
  1. KIOVIG [Suspect]
     Active Substance: HUMAN IMMUNOGLOBULIN G
     Dosage: 20 GRAM
     Route: 042
     Dates: start: 201711
  2. TACROLIMUS. [Concomitant]
     Active Substance: TACROLIMUS
     Indication: MYASTHENIA GRAVIS
     Dosage: 2 MILLIGRAM
     Route: 048
  3. FLEBOGAMMA DIF [Suspect]
     Active Substance: HUMAN IMMUNOGLOBULIN G
     Indication: MYASTHENIA GRAVIS
     Dosage: 30 GRAM
     Route: 042
     Dates: start: 20170926
  4. KIOVIG [Suspect]
     Active Substance: HUMAN IMMUNOGLOBULIN G
     Indication: MYASTHENIA GRAVIS
     Dosage: 10 GRAM
     Route: 042
     Dates: start: 201712
  5. FLEBOGAMMA DIF [Suspect]
     Active Substance: HUMAN IMMUNOGLOBULIN G
     Dosage: 30 GRAM
     Route: 042
     Dates: start: 201703, end: 20170926
  6. KIOVIG [Suspect]
     Active Substance: HUMAN IMMUNOGLOBULIN G
     Dosage: 10 GRAM
     Route: 042
     Dates: start: 201710
  7. ACIDUM ACETHYLSALICYLICUM [Concomitant]
     Indication: CARDIAC DISORDER
     Dosage: 100 MILLIGRAM
     Route: 048
  8. AMBENONIUM [Concomitant]
     Active Substance: AMBENONIUM
     Indication: MYASTHENIA GRAVIS
     Dosage: 30 MILLIGRAM
     Route: 048
     Dates: start: 2016
  9. DISTIGMINE [Concomitant]
     Indication: MYASTHENIA GRAVIS
     Dosage: 5 MILLIGRAM
     Route: 048
     Dates: start: 2016
  10. PREDNISONUM [Concomitant]
     Active Substance: PREDNISONE
     Indication: MYASTHENIA GRAVIS
     Dosage: 5 MILLIGRAM
     Route: 048
     Dates: start: 2016
  11. RITUXIMAB. [Concomitant]
     Active Substance: RITUXIMAB
     Dosage: UNK
     Dates: start: 201711

REACTIONS (3)
  - Cholelithiasis [Recovered/Resolved]
  - Pancreatitis acute [Recovered/Resolved]
  - Abdominal pain upper [Recovered/Resolved]

NARRATIVE: CASE EVENT DATE: 20170926
